FAERS Safety Report 12331374 (Version 1)
Quarter: 2016Q2

REPORT INFORMATION
  Report Type: Other
  Country: KR (occurrence: KR)
  Receive Date: 20160504
  Receipt Date: 20160504
  Transmission Date: 20160815
  Serious: Yes (Other)
  Sender: FDA-Public Use
  Company Number: KR-WARNER CHILCOTT, LLC-1051409

PATIENT
  Age: 81 Year
  Sex: Female

DRUGS (8)
  1. METHOTREXATE [Concomitant]
     Active Substance: METHOTREXATE
  2. CELECOXIB. [Concomitant]
     Active Substance: CELECOXIB
  3. CALCIUM LACTATE [Concomitant]
     Active Substance: CALCIUM LACTATE
  4. GLUCONATE SODIUM [Concomitant]
  5. ACTONEL [Suspect]
     Active Substance: RISEDRONATE SODIUM
     Indication: PROPHYLAXIS
     Route: 048
  6. ERGOCALCIFEROL. [Concomitant]
     Active Substance: ERGOCALCIFEROL
  7. ACTONEL [Suspect]
     Active Substance: RISEDRONATE SODIUM
     Indication: OSTEOPOROSIS
     Route: 048
  8. PREDNISONE. [Concomitant]
     Active Substance: PREDNISONE

REACTIONS (1)
  - Atypical femur fracture [None]
